FAERS Safety Report 5902236-7 (Version None)
Quarter: 2008Q3

REPORT INFORMATION
  Report Type: 
  Country: None (occurrence: None)
  Receive Date: 20080929
  Receipt Date: 20080923
  Transmission Date: 20090109
  Serious: Yes (Hospitalization)
  Sender: FDA-Public Use
  Company Number: US-B.I. PHARMACEUTICALS,INC./RIDGEFIELD-2008-BP-14847BP

PATIENT
  Sex: Female

DRUGS (8)
  1. SPIRIVA [Suspect]
     Indication: CHRONIC OBSTRUCTIVE PULMONARY DISEASE
     Dosage: 18MCG
     Route: 055
     Dates: start: 20070101
  2. FUROSEMIDE [Concomitant]
  3. ASPIRIN [Concomitant]
  4. SPIRONOLACT [Concomitant]
  5. METOPROLOL [Concomitant]
  6. ISOSORBIDE [Concomitant]
  7. VYTORIN [Concomitant]
  8. ALENDRONATE SODIUM [Concomitant]

REACTIONS (2)
  - CHEST DISCOMFORT [None]
  - PHARMACEUTICAL PRODUCT COMPLAINT [None]
